FAERS Safety Report 5918024-1 (Version None)
Quarter: 2008Q4

REPORT INFORMATION
  Report Type: 
  Country: None (occurrence: None)
  Receive Date: 20081014
  Receipt Date: 20081002
  Transmission Date: 20090506
  Serious: Yes (Other)
  Sender: FDA-Public Use
  Company Number: JP-PFIZER INC-2008074200

PATIENT
  Sex: Female
  Weight: 40 kg

DRUGS (10)
  1. AZULFIDINE [Suspect]
     Indication: RHEUMATOID ARTHRITIS
     Route: 048
     Dates: start: 20080610, end: 20080625
  2. FERROMIA [Concomitant]
     Route: 048
     Dates: start: 20061130
  3. RABEPRAZOLE SODIUM [Concomitant]
     Route: 048
     Dates: start: 20061130
  4. PLETAL [Concomitant]
     Route: 048
     Dates: start: 20061130
  5. ETIZOLAM [Concomitant]
     Route: 048
     Dates: start: 20061130
  6. MECOBALAMIN [Concomitant]
     Route: 048
     Dates: start: 20061130
  7. HICEE [Concomitant]
     Route: 048
     Dates: start: 20061026
  8. BERAPROST SODIUM [Concomitant]
     Route: 048
     Dates: start: 20061130
  9. ADOFEED [Concomitant]
     Dates: start: 20060902
  10. AZUNOL [Concomitant]
     Dates: start: 20080610

REACTIONS (2)
  - RASH [None]
  - RENAL VASCULITIS [None]
